FAERS Safety Report 10381737 (Version 1)
Quarter: 2014Q1

REPORT INFORMATION
  Report Type: Spontaneous
  Country: US (occurrence: None)
  Receive Date: 20140306
  Receipt Date: 20140306
  Transmission Date: 20141002
  Serious: Yes (Other)
  Sender: FDA-Public Use
  Company Number: 163-21880-13090299

PATIENT
  Age: 82 Year
  Sex: Female

DRUGS (18)
  1. REVLIMID (LENALIDOMIDE) (5 MILLIGRAM, CAPSULES) [Suspect]
     Indication: PLASMA CELL MYELOMA
     Route: 048
     Dates: start: 20121011
  2. VELCADE (BORTEZOMIB) [Concomitant]
  3. DECADRON (DEXAMETHASONE) [Concomitant]
  4. LOVENOX (HEPARIN-FRACTION, SODIUM SALT) [Concomitant]
  5. TYLENOL PM [Concomitant]
  6. CALCIUM CARBONATE [Concomitant]
  7. CARVEDILOL [Concomitant]
  8. FLAX SEED OIL (LINUM USITATISSIMUM SEED OIL) [Concomitant]
  9. GABAPENTIN [Concomitant]
  10. MAGNESIUM OXIDE [Concomitant]
  11. NITROGLYCERIN (GLYCERYL TRINITRATE) [Concomitant]
  12. FISH OIL [Concomitant]
  13. POTASSIUM CHLORIDE [Concomitant]
  14. CRESTOR (ROSUVASTATIN) [Concomitant]
  15. VITAMIN B COMPLEX (B-KOMPLEX ^LECIVA^) [Concomitant]
  16. MAXIVISION [Concomitant]
  17. ACYCLOVIR (ACICLOVIR) (ACICLOVIR) [Concomitant]
  18. SENNA [Concomitant]

REACTIONS (2)
  - Leukopenia [None]
  - Plasma cell myeloma [None]
